FAERS Safety Report 16191464 (Version 2)
Quarter: 2019Q2

REPORT INFORMATION
  Report Type: Spontaneous
  Country: DE (occurrence: DE)
  Receive Date: 20190412
  Receipt Date: 20190415
  Transmission Date: 20190711
  Serious: Yes (Hospitalization, Other)
  Sender: FDA-Public Use
  Company Number: DE-MYLANLABS-2019M1034311

PATIENT
  Age: 68 Year
  Sex: Male

DRUGS (3)
  1. FENOFIBRATE. [Suspect]
     Active Substance: FENOFIBRATE
     Indication: TYPE V HYPERLIPIDAEMIA
     Dosage: 1 DOSAGE FORM, QD (1 DF, BID)
     Route: 065
     Dates: start: 2004, end: 20050128
  2. NIASPAN [Interacting]
     Active Substance: NIACIN
     Indication: TYPE V HYPERLIPIDAEMIA
     Dosage: UNK
     Route: 065
     Dates: start: 2004, end: 20050128
  3. LOCOL                              /01224502/ [Interacting]
     Active Substance: FLUVASTATIN SODIUM
     Indication: TYPE V HYPERLIPIDAEMIA
     Dosage: DAILY DOSE: 80 MG MILLGRAM(S) EVERY DAY
     Route: 048
     Dates: start: 2004, end: 20050128

REACTIONS (4)
  - Blood creatine phosphokinase increased [Recovered/Resolved]
  - Drug interaction [Unknown]
  - Myopathy [Recovering/Resolving]
  - Rhabdomyolysis [Recovered/Resolved]

NARRATIVE: CASE EVENT DATE: 200501
